FAERS Safety Report 9651997 (Version 1)
Quarter: 2013Q4

REPORT INFORMATION
  Report Type: Spontaneous
  Country: US (occurrence: None)
  Receive Date: 20131028
  Receipt Date: 20131028
  Transmission Date: 20140711
  Serious: Yes (Other)
  Sender: FDA-Public Use
  Company Number: None

PATIENT
  Age: 72 Year
  Sex: Male
  Weight: 84.37 kg

DRUGS (10)
  1. PENICILLIN [Suspect]
  2. ASPIRIN [Concomitant]
  3. ATENOLOL [Concomitant]
  4. DEPAKOTE [Concomitant]
  5. FERROUS SULFATE [Concomitant]
  6. GABAPENTIN [Concomitant]
  7. PRILOSEC [Concomitant]
  8. SIMVASTATIN [Concomitant]
  9. OXYCODONE [Concomitant]
  10. TRAZODONE [Concomitant]

REACTIONS (1)
  - Stevens-Johnson syndrome [None]
